FAERS Safety Report 9500645 (Version 6)
Quarter: 2014Q1

REPORT INFORMATION
  Report Type: Spontaneous
  Country: US (occurrence: US)
  Receive Date: 20130905
  Receipt Date: 20140326
  Transmission Date: 20141002
  Serious: Yes (Other)
  Sender: FDA-Public Use
  Company Number: US-PFIZER INC-2013255157

PATIENT
  Age: 34 Year
  Sex: Female
  Weight: 142 kg

DRUGS (41)
  1. LYRICA [Suspect]
     Indication: NEUROPATHY PERIPHERAL
     Dosage: 50 MG, 2X/DAY
     Route: 048
  2. LYRICA [Suspect]
     Indication: FIBROMYALGIA
     Dosage: 100 MG, 2X/DAY
     Route: 048
  3. LYRICA [Suspect]
     Dosage: 300 MG, 2X/DAY
     Route: 048
  4. LYRICA [Suspect]
     Dosage: 150 MG, 2X/DAY (1 CAP BY MOUTH EVERY 12 HOURS)
     Route: 048
     Dates: start: 20140311
  5. GEODON [Suspect]
     Indication: PSYCHOTIC DISORDER
     Dosage: 80 MG DAILY
  6. LEVOTHYROXINE [Concomitant]
     Indication: HYPOTHYROIDISM
     Dosage: 50 UG, DAILY
  7. LEVOTHYROXINE [Concomitant]
     Dosage: 50 UG, TAKE 1 TAB DAILY
     Route: 048
     Dates: start: 20140207
  8. PROPRANOLOL [Concomitant]
     Indication: MIGRAINE
     Dosage: 40 MG, 2X/DAY
  9. ALDACTONE [Concomitant]
     Indication: OEDEMA
     Dosage: 25 MG, 1X/DAY
     Route: 048
     Dates: start: 20140207
  10. SPIRONOLACTONE [Concomitant]
     Indication: OEDEMA
     Dosage: 25 MG, DAILY
  11. LASIX [Concomitant]
     Indication: OEDEMA
     Dosage: 40 MG, TAKE 1 TAB DAILY AS NEEDED
     Route: 048
     Dates: start: 20131227
  12. BACLOFEN [Concomitant]
     Indication: MUSCLE SPASMS
     Dosage: 20 MG, 2X/DAY
  13. PRAVASTATIN [Concomitant]
     Indication: BLOOD CHOLESTEROL INCREASED
     Dosage: 80 MG, DAILY
  14. PRAVACHOL [Concomitant]
     Indication: BLOOD CHOLESTEROL INCREASED
     Dosage: 40 MG, TAKE 1 TAB DAILY LATE
     Route: 048
     Dates: start: 20131227
  15. PHENERGAN [Concomitant]
     Indication: NAUSEA
     Dosage: 25 MG, TAKE 1 TAB EVERY 6 HOURS AS NEEDED
     Route: 048
     Dates: start: 20140103
  16. PHENERGAN [Concomitant]
     Indication: VOMITING
  17. PREDNISONE [Concomitant]
     Indication: URTICARIA
     Dosage: UNK
  18. CELEBREX [Concomitant]
     Indication: SPINAL OSTEOARTHRITIS
     Dosage: 200 MG, 2X/DAY (TAKE 1 CAP 2 TIMES DAILY)
     Route: 048
     Dates: start: 20130919
  19. CELEBREX [Concomitant]
     Indication: OSTEOARTHRITIS
  20. CELEBREX [Concomitant]
     Indication: OSTEOARTHRITIS
  21. CYMBALTA [Concomitant]
     Indication: DEPRESSION
     Dosage: 120 MG, DAILY
  22. VISTARIL [Concomitant]
     Indication: ANXIETY
     Dosage: 50 MG (TWO TABLETS OF 25MG), 4X/DAY
     Route: 048
  23. WELLBUTRIN [Concomitant]
     Indication: DEPRESSION
     Dosage: 150 MG, DAILY
  24. ROZEREM [Concomitant]
     Indication: INSOMNIA
     Dosage: 8 MG, DAILY
  25. LIBRAX [Concomitant]
     Indication: GASTRIC DISORDER
     Dosage: CHLORDIAZEPOXIDE (5MG)/CLIDINIUM (2.5MG), 3X/DAY BEFORE MEALS
     Route: 048
     Dates: start: 20131004
  26. BUSPIRONE [Concomitant]
     Indication: ANXIETY
     Dosage: 7.5 MG (HALF A TABLET OF 15MG), 2X/DAY
     Route: 048
  27. TRAMADOL [Concomitant]
     Indication: PAIN
     Dosage: 100 MG (TWO TABLETS OF 50MG), 2X/DAY
     Route: 048
  28. FLEXERIL [Concomitant]
     Indication: MUSCLE SPASMS
     Dosage: 10 MG, 3X/DAY (3 TIMES DAILY AS NEEDED)
     Route: 048
     Dates: start: 20140311
  29. PRINIVIL [Concomitant]
     Dosage: 5 MG, DAILY
     Route: 048
     Dates: start: 20140305
  30. ZOVIRAX [Concomitant]
     Dosage: 200MG (TAKE 4 CAPSULES), 5 TIMES DAILY FOR 7 DAYS
     Route: 048
     Dates: start: 20140305
  31. ADVAIR DISKUS [Concomitant]
     Dosage: (250-50 MCG/DOSE DISK WITH DEVICE) TAKE 1 PUFF BY INHALATION 2 TIMES DAILY
     Route: 055
     Dates: start: 20131227
  32. ATROVENT [Concomitant]
     Indication: DYSPNOEA
     Dosage: 2.5 ML, 4X/DAY
     Route: 055
     Dates: start: 20131007
  33. ATROVENT [Concomitant]
     Indication: WHEEZING
  34. PRILOSEC [Concomitant]
     Dosage: 40 MG, 1X/DAY (TAKE 1 CAP BEFORE BREAKFAST)
     Route: 048
     Dates: start: 20130731
  35. INDERAL [Concomitant]
     Dosage: TAKE 1 TAB 2 TIMES DAILY
     Route: 048
     Dates: start: 20130712
  36. METAMUCIL [Concomitant]
     Dosage: UNK
     Route: 048
  37. MIRENA [Concomitant]
     Indication: INTRA-UTERINE CONTRACEPTIVE DEVICE
     Dosage: 20 MCG/ 24HOUR BY INTRAUTERINE UID
  38. FISH OIL [Concomitant]
     Dosage: 300-1,000 MG, TAKE DAILY
     Route: 048
  39. PROVENTIL INHALER [Concomitant]
     Indication: DYSPNOEA
     Dosage: UNK
     Route: 055
     Dates: start: 20131002
  40. VENTOLIN [Concomitant]
     Indication: DYSPNOEA
     Dosage: UNK
     Route: 055
     Dates: start: 20131002
  41. ALBUTEROL [Concomitant]
     Indication: DYSPNOEA
     Dosage: TAKE 2 PUFFS BY INHALATION EVERY 4 HOURS AS NEEDED
     Route: 055
     Dates: start: 20130813

REACTIONS (14)
  - Diabetes mellitus [Not Recovered/Not Resolved]
  - Neuropathy peripheral [Not Recovered/Not Resolved]
  - Intervertebral disc protrusion [Unknown]
  - Gallbladder disorder [Unknown]
  - Drug effect incomplete [Unknown]
  - Hypoaesthesia [Unknown]
  - Acarodermatitis [Unknown]
  - Fall [Unknown]
  - Head injury [Unknown]
  - Herpes zoster [Unknown]
  - Drug effect decreased [Unknown]
  - Drug withdrawal syndrome [Unknown]
  - Malaise [Unknown]
  - Vomiting [Unknown]
